FAERS Safety Report 15945188 (Version 1)
Quarter: 2019Q1

REPORT INFORMATION
  Report Type: Spontaneous
  Country: CO (occurrence: CO)
  Receive Date: 20190211
  Receipt Date: 20190211
  Transmission Date: 20190417
  Serious: Yes (Other)
  Sender: FDA-Public Use
  Company Number: CO-SA-2018SA318226

PATIENT
  Age: 54 Year
  Sex: Male

DRUGS (6)
  1. TRIAMCINOLONE ACETONIDE - WINTHROP [Suspect]
     Active Substance: TRIAMCINOLONE ACETONIDE
     Indication: PERIORBITAL DISORDER
  2. CICLOSPORIN [Suspect]
     Active Substance: CYCLOSPORINE
     Indication: ENDOCRINE OPHTHALMOPATHY
     Dosage: 200 MG, QD
     Dates: start: 201310, end: 201312
  3. AZATHIOPRINE. [Suspect]
     Active Substance: AZATHIOPRINE
     Indication: ENDOCRINE OPHTHALMOPATHY
  4. PREDNISONE. [Suspect]
     Active Substance: PREDNISONE
     Indication: ENDOCRINE OPHTHALMOPATHY
     Dosage: 1 MG/KG
  5. METHYLPREDNISOLONE. [Suspect]
     Active Substance: METHYLPREDNISOLONE
     Indication: ENDOCRINE OPHTHALMOPATHY
     Dosage: ACCUMULATED DOSES 5.5 G EV
     Dates: start: 201211
  6. METHOTREXATE. [Suspect]
     Active Substance: METHOTREXATE
     Indication: ENDOCRINE OPHTHALMOPATHY
     Dates: start: 201310, end: 201312

REACTIONS (4)
  - Disease progression [Recovered/Resolved]
  - Endocrine ophthalmopathy [Recovered/Resolved]
  - Transaminases increased [Recovered/Resolved]
  - Drug ineffective [Recovered/Resolved]

NARRATIVE: CASE EVENT DATE: 2013
